FAERS Safety Report 19124410 (Version 2)
Quarter: 2022Q1

REPORT INFORMATION
  Report Type: Report from Study
  Country: US (occurrence: US)
  Receive Date: 20210412
  Receipt Date: 20220309
  Transmission Date: 20220423
  Serious: No
  Sender: FDA-Public Use
  Company Number: US-TAKEDA-2021TUS023178

PATIENT
  Sex: Male

DRUGS (2)
  1. PONATINIB [Suspect]
     Active Substance: PONATINIB
     Indication: Chronic myeloid leukaemia
     Dosage: 15 MILLIGRAM, QD
     Route: 065
     Dates: start: 20210126
  2. PONATINIB [Suspect]
     Active Substance: PONATINIB
     Dosage: UNK UNK, BID
     Route: 065

REACTIONS (3)
  - Myalgia [Unknown]
  - Asthenia [Unknown]
  - Fatigue [Unknown]
